FAERS Safety Report 4476569-8 (Version None)
Quarter: 2004Q4

REPORT INFORMATION
  Report Type: 
  Country: None (occurrence: None)
  Receive Date: 20041012
  Receipt Date: 20041001
  Transmission Date: 20050328
  Serious: Yes (Other)
  Sender: FDA-Public Use
  Company Number: 163-20785-04100104

PATIENT

DRUGS (1)
  1. THALOMID [Suspect]
     Indication: B-CELL SMALL LYMPHOCYTIC LYMPHOMA
     Dosage: 200MG FOR 1-2 WEEKS, TITRATE UPWARD BY 100MG EVERY 1-2 WEEKS UNTIL 800MG DAILY, ORAL
     Route: 048

REACTIONS (19)
  - ASTHENIA [None]
  - ATRIAL FIBRILLATION [None]
  - ATRIAL FLUTTER [None]
  - BLOOD CREATININE ABNORMAL [None]
  - CONSTIPATION [None]
  - COUGH [None]
  - DEPRESSION [None]
  - DYSPHAGIA [None]
  - FATIGUE [None]
  - FEBRILE NEUTROPENIA [None]
  - GRANULOCYTE COUNT DECREASED [None]
  - HAEMOGLOBIN ABNORMAL [None]
  - LETHARGY [None]
  - MALAISE [None]
  - MOOD ALTERED [None]
  - ODYNOPHAGIA [None]
  - OESOPHAGITIS [None]
  - PNEUMONITIS [None]
  - SUPRAVENTRICULAR TACHYCARDIA [None]
